FAERS Safety Report 19811829 (Version 1)
Quarter: 2021Q3

REPORT INFORMATION
  Report Type: Spontaneous
  Country: US (occurrence: US)
  Receive Date: 20210909
  Receipt Date: 20210909
  Transmission Date: 20211014
  Serious: No
  Sender: FDA-Public Use
  Company Number: US-NIPPON SHINYAKU-NIP-2021-000047

PATIENT

DRUGS (1)
  1. VILTOLARSEN. [Suspect]
     Active Substance: VILTOLARSEN
     Indication: PRODUCT USED FOR UNKNOWN INDICATION
     Dosage: 3500 MG, QWK
     Route: 042
     Dates: start: 2021

REACTIONS (3)
  - Product dose omission issue [Unknown]
  - Infusion site discharge [Unknown]
  - Infusion site infection [Unknown]

NARRATIVE: CASE EVENT DATE: 20210528
